FAERS Safety Report 5212662-X (Version None)
Quarter: 2006Q4

REPORT INFORMATION
  Report Type: 
  Country: None (occurrence: None)
  Receive Date: 20061114
  Receipt Date: 20061009
  Transmission Date: 20070319
  Serious: No
  Sender: FDA-Public Use
  Company Number: S06-USA-04204-01

PATIENT
  Age: 80 Year
  Sex: Male

DRUGS (10)
  1. NAMENDA [Suspect]
     Indication: DEMENTIA
     Dosage: 5 MG QD PO
     Route: 048
     Dates: start: 20061001, end: 20061007
  2. NAMENDA [Suspect]
     Indication: DEMENTIA
     Dosage: 5 MG BID PO
     Route: 048
     Dates: start: 20061008
  3. FLOMAX [Concomitant]
  4. BETHANECHOL [Concomitant]
  5. NEURONTIN [Concomitant]
  6. GLYBURIDE [Concomitant]
  7. ATENOLOL [Concomitant]
  8. ZOCOR [Concomitant]
  9. PROTONIX [Concomitant]
  10. WARFARIN SODIUM [Concomitant]

REACTIONS (1)
  - URINARY INCONTINENCE [None]
